FAERS Safety Report 7708335-1 (Version None)
Quarter: 2011Q3

REPORT INFORMATION
  Report Type: 
  Country: None (occurrence: None)
  Receive Date: 20110825
  Receipt Date: 20110819
  Transmission Date: 20111222
  Serious: No
  Sender: FDA-Public Use
  Company Number: US-BIOGENIDEC-2011BI031896

PATIENT
  Age: 68 Year
  Sex: Female

DRUGS (2)
  1. AVONEX [Suspect]
     Indication: MULTIPLE SCLEROSIS
     Route: 030
     Dates: start: 19970101
  2. AVONEX [Suspect]
     Route: 030

REACTIONS (6)
  - MULTIPLE SCLEROSIS RELAPSE [None]
  - BLOOD PRESSURE INADEQUATELY CONTROLLED [None]
  - MUSCLE SPASMS [None]
  - HEART RATE INCREASED [None]
  - PAIN IN EXTREMITY [None]
  - FATIGUE [None]
